FAERS Safety Report 9861754 (Version 1)
Quarter: 2014Q1

REPORT INFORMATION
  Report Type: Spontaneous
  Country: US (occurrence: None)
  Receive Date: 20140130
  Receipt Date: 20140130
  Transmission Date: 20141002
  Serious: Yes (Death)
  Sender: FDA-Public Use
  Company Number: 2014AP000673

PATIENT
  Age: 43 Year
  Sex: Male

DRUGS (3)
  1. AMLODIPINE BESILATE [Suspect]
     Dosage: ; PO
     Route: 048
  2. PROPRANOLOL [Suspect]
     Dosage: ; PO
     Route: 048
  3. CLONAZEPAM TABLETS, USP [Suspect]
     Dosage: ; PO
     Route: 048

REACTIONS (2)
  - Accidental exposure to product [None]
  - Exposure via ingestion [None]
